FAERS Safety Report 10073013 (Version 1)
Quarter: 2014Q2

REPORT INFORMATION
  Report Type: Spontaneous
  Country: US (occurrence: US)
  Receive Date: 20140411
  Receipt Date: 20140411
  Transmission Date: 20141212
  Serious: Yes (Hospitalization)
  Sender: FDA-Public Use
  Company Number: US-B.I. PHARMACEUTICALS,INC./RIDGEFIELD-2014-BI-15869BP

PATIENT
  Age: 74 Year
  Sex: Female
  Weight: 65 kg

DRUGS (5)
  1. SPIRIVA [Suspect]
     Indication: CHRONIC OBSTRUCTIVE PULMONARY DISEASE
     Dosage: 18 MCG
     Route: 055
     Dates: start: 201101
  2. KLOR-CON [Concomitant]
     Indication: ROUTINE HEALTH MAINTENANCE
     Route: 048
  3. MORPHINE SULFATE [Concomitant]
     Indication: ARTHRITIS
     Route: 048
     Dates: start: 2011
  4. DULERA [Concomitant]
     Indication: CHRONIC OBSTRUCTIVE PULMONARY DISEASE
     Dosage: FORMULATION: (INHALATION SOLUTION)
     Route: 055
  5. OXYGEN [Concomitant]
     Route: 065
     Dates: start: 201012

REACTIONS (1)
  - Peripheral swelling [Recovered/Resolved]
